FAERS Safety Report 9537175 (Version 2)
Quarter: 2013Q3

REPORT INFORMATION
  Report Type: Spontaneous
  Country: GB (occurrence: GB)
  Receive Date: 20130919
  Receipt Date: 20130919
  Transmission Date: 20140515
  Serious: Yes (Other)
  Sender: FDA-Public Use
  Company Number: PHFR2013GB003833

PATIENT
  Age: 39 Year
  Sex: Male

DRUGS (5)
  1. CLOZARIL [Suspect]
     Indication: SCHIZOPHRENIA
     Dosage: UNK
     Route: 048
     Dates: start: 20040712
  2. CLOZARIL [Suspect]
     Dosage: 300 MG, DAILY
  3. SERENACE [Concomitant]
     Indication: PSYCHOTIC DISORDER
     Dosage: 800 MG, DAILY
     Route: 048
  4. VALPROATE [Concomitant]
     Indication: AFFECTIVE DISORDER
     Dosage: 125 MG, DAILY
     Route: 048
  5. SERTRALINE [Concomitant]
     Indication: DEPRESSION
     Dosage: 100 MG, DAILY
     Route: 048

REACTIONS (2)
  - White blood cell count increased [Recovered/Resolved]
  - Platelet count decreased [Recovered/Resolved]
